FAERS Safety Report 4324726-3 (Version None)
Quarter: 2004Q1

REPORT INFORMATION
  Report Type: 
  Country: None (occurrence: None)
  Receive Date: 20040326
  Receipt Date: 20020516
  Transmission Date: 20041129
  Serious: Yes (Death, Other)
  Sender: FDA-Public Use
  Company Number: WAES 0205USA02003

PATIENT
  Age: 76 Year
  Sex: Female
  Weight: 48 kg

DRUGS (6)
  1. [THERAPY UNSPECIFIED] [Concomitant]
     Indication: CARDIAC DISORDER
  2. INSULIN [Concomitant]
  3. PENTASA [Concomitant]
  4. NITROGLYCERIN [Concomitant]
  5. VIOXX [Suspect]
     Indication: ARTHRITIS
     Route: 048
     Dates: start: 20000301
  6. VIOXX [Suspect]
     Indication: PAIN
     Route: 048
     Dates: start: 20000301

REACTIONS (12)
  - ANXIETY [None]
  - CARDIAC DISORDER [None]
  - CARDIO-RESPIRATORY ARREST [None]
  - CEREBROVASCULAR DISORDER [None]
  - DEPRESSION [None]
  - DIABETES MELLITUS [None]
  - INSOMNIA [None]
  - PNEUMONIA [None]
  - POLYTRAUMATISM [None]
  - RENAL FAILURE ACUTE [None]
  - SEPSIS [None]
  - VASCULAR BYPASS GRAFT [None]
